FAERS Safety Report 20051220 (Version 1)
Quarter: 2021Q4

REPORT INFORMATION
  Report Type: Spontaneous
  Country: US (occurrence: US)
  Receive Date: 20211110
  Receipt Date: 20211110
  Transmission Date: 20220303
  Serious: No
  Sender: FDA-Public Use
  Company Number: US-CELGENE-USA-20211008620

PATIENT
  Age: 64 Year
  Sex: Male
  Weight: 73.548 kg

DRUGS (1)
  1. REVLIMID [Suspect]
     Active Substance: LENALIDOMIDE
     Indication: Plasma cell myeloma
     Dosage: 25 MILLIGRAM
     Route: 048
     Dates: start: 20211027

REACTIONS (3)
  - Fatigue [Unknown]
  - Pyrexia [Unknown]
  - Rash macular [Unknown]

NARRATIVE: CASE EVENT DATE: 20211028
